FAERS Safety Report 25261868 (Version 1)
Quarter: 2025Q2

REPORT INFORMATION
  Report Type: Spontaneous
  Country: US (occurrence: US)
  Receive Date: 20250502
  Receipt Date: 20250502
  Transmission Date: 20250716
  Serious: Yes (Hospitalization)
  Sender: AILEX PHARMACEUTICALS LLC
  Company Number: AP-2025-US-6544

PATIENT
  Age: 44 Year
  Sex: Female

DRUGS (1)
  1. CROMOLYN SODIUM [Suspect]
     Active Substance: CROMOLYN SODIUM
     Indication: Mastocytosis
     Route: 048
     Dates: start: 20250412, end: 20250413

REACTIONS (2)
  - Oesophagitis [Not Recovered/Not Resolved]
  - Endoscopy [Not Recovered/Not Resolved]

NARRATIVE: CASE EVENT DATE: 20250413
